FAERS Safety Report 12419915 (Version 2)
Quarter: 2016Q2

REPORT INFORMATION
  Report Type: Report from Study
  Country: JP (occurrence: JP)
  Receive Date: 20160531
  Receipt Date: 20160603
  Transmission Date: 20160815
  Serious: Yes (Other)
  Sender: FDA-Public Use
  Company Number: JP-B.I. PHARMACEUTICALS,INC./RIDGEFIELD-2016-BI-34288NB

PATIENT
  Age: 60 Year
  Sex: Female

DRUGS (2)
  1. DOCETAXEL. [Concomitant]
     Active Substance: DOCETAXEL
     Indication: LUNG ADENOCARCINOMA
     Dosage: 75 MG/M2
     Route: 065
  2. OFEV [Suspect]
     Active Substance: NINTEDANIB
     Indication: LUNG ADENOCARCINOMA
     Dosage: 300 MG
     Route: 048

REACTIONS (7)
  - Oedema peripheral [Unknown]
  - Oedema [Unknown]
  - Anaemia [Unknown]
  - Rash [Unknown]
  - Neutropenia [Unknown]
  - Fatigue [Unknown]
  - Alanine aminotransferase increased [Unknown]
